FAERS Safety Report 17834728 (Version 1)
Quarter: 2020Q2

REPORT INFORMATION
  Report Type: Spontaneous
  Country: US (occurrence: US)
  Receive Date: 20200528
  Receipt Date: 20200528
  Transmission Date: 20200714
  Serious: Yes (Other)
  Sender: FDA-Public Use
  Company Number: US-PFIZER INC-2020060617

PATIENT
  Age: 59 Year
  Sex: Male

DRUGS (1)
  1. RAPAMUNE [Suspect]
     Active Substance: SIROLIMUS
     Indication: HEART TRANSPLANT
     Dosage: 1.5 MG, DAILY (TAKE 3 TABLETS BY MOUTH DAILY)
     Route: 048

REACTIONS (4)
  - Dysphagia [Unknown]
  - Throat cancer [Unknown]
  - Product use in unapproved indication [Unknown]
  - Off label use [Unknown]
